FAERS Safety Report 6691036-9 (Version None)
Quarter: 2010Q2

REPORT INFORMATION
  Report Type: 
  Country: None (occurrence: None)
  Receive Date: 20100421
  Receipt Date: 20100414
  Transmission Date: 20101027
  Serious: Yes (Hospitalization)
  Sender: FDA-Public Use
  Company Number: US-ELI_LILLY_AND_COMPANY-US201004003591

PATIENT
  Sex: Male
  Weight: 191.84 kg

DRUGS (17)
  1. BYETTA [Suspect]
     Dosage: 5 UG, 2/D
     Route: 058
     Dates: start: 20080101, end: 20080101
  2. BYETTA [Suspect]
     Dosage: 10 UG, 2/D
     Route: 058
     Dates: start: 20080101
  3. BUMEX [Concomitant]
     Dosage: 1 MG, DAILY (1/D)
  4. ASPIRIN [Concomitant]
     Dosage: 325 MG, DAILY (1/D)
  5. OXYBUTYNIN CHLORIDE [Concomitant]
     Dosage: 5 MG, 2/D
  6. ZOCOR [Concomitant]
     Dosage: 80 MG, DAILY (1/D)
  7. LIPITOR [Concomitant]
  8. METOCLOPRAM GI [Concomitant]
     Dosage: 10 MG, 2/D
  9. HUMULIN N [Concomitant]
     Dosage: 300 U, UNK
  10. HUMULIN N [Concomitant]
     Dosage: 40 U, EACH MORNING
  11. HUMULIN N [Concomitant]
     Dosage: 45 U, DAILY (1/D)
  12. HUMULIN N [Concomitant]
     Dosage: 45 U, EACH EVENING
  13. HUMULIN R [Concomitant]
     Dosage: 300 U, UNK
  14. HUMULIN R [Concomitant]
     Dosage: 40 U, EACH MORNING
  15. HUMULIN R [Concomitant]
     Dosage: 45 U, DAILY (1/D)
  16. HUMULIN R [Concomitant]
     Dosage: 45 U, EACH EVENING
  17. LOVAZA [Concomitant]
     Dosage: 1000 MG, UNK

REACTIONS (10)
  - ACCIDENTAL OVERDOSE [None]
  - BLOOD GLUCOSE INCREASED [None]
  - BLOOD IRON DECREASED [None]
  - DRUG INEFFECTIVE [None]
  - FALL [None]
  - OEDEMA PERIPHERAL [None]
  - OFF LABEL USE [None]
  - PAIN [None]
  - RENAL FAILURE [None]
  - WEIGHT DECREASED [None]
